FAERS Safety Report 24924842 (Version 1)
Quarter: 2025Q1

REPORT INFORMATION
  Report Type: Report from Study
  Country: US (occurrence: US)
  Receive Date: 20250204
  Receipt Date: 20250204
  Transmission Date: 20250408
  Serious: No
  Sender: EXELIXIS
  Company Number: US-EXELIXIS-CABO-24076021

PATIENT
  Age: 62 Year
  Sex: Male

DRUGS (2)
  1. CABOMETYX [Suspect]
     Active Substance: CABOZANTINIB S-MALATE
     Indication: Renal cell carcinoma
     Dosage: 60 MG, QD
     Dates: start: 20240307, end: 20240425
  2. OXYCODONE [Concomitant]
     Active Substance: OXYCODONE

REACTIONS (8)
  - Thyroid hormones increased [Recovering/Resolving]
  - Epigastric discomfort [Unknown]
  - Asthenia [Not Recovered/Not Resolved]
  - Fatigue [Unknown]
  - Abdominal pain upper [Unknown]
  - Skin erosion [Recovered/Resolved]
  - Rhinorrhoea [Recovering/Resolving]
  - Pain of skin [Not Recovered/Not Resolved]

NARRATIVE: CASE EVENT DATE: 20240301
